FAERS Safety Report 6435917-X (Version None)
Quarter: 2009Q4

REPORT INFORMATION
  Report Type: 
  Country: None (occurrence: None)
  Receive Date: 20091111
  Receipt Date: 20091029
  Transmission Date: 20100525
  Serious: Yes (Hospitalization)
  Sender: FDA-Public Use
  Company Number: JP-PFIZER INC-2009291588

PATIENT
  Age: 4 Year
  Sex: Male
  Weight: 15 kg

DRUGS (5)
  1. GABAPEN [Suspect]
     Indication: PARTIAL SEIZURES
     Dosage: 400 MG/DAY
     Route: 048
     Dates: start: 20080108
  2. GABAPEN [Suspect]
     Dosage: 200MG/DAY
     Dates: start: 20071225, end: 20071231
  3. GABAPEN [Suspect]
     Dosage: 300MG/DAY
     Dates: start: 20080101, end: 20080107
  4. ALEVIATIN [Concomitant]
     Indication: PARTIAL SEIZURES
     Dosage: 110MG/DAY
     Route: 048
  5. SELENICA-R [Concomitant]
     Indication: PARTIAL SEIZURES
     Dosage: 500MG/AY
     Route: 048

REACTIONS (1)
  - CONVULSION [None]
